FAERS Safety Report 25841754 (Version 3)
Quarter: 2025Q4

REPORT INFORMATION
  Report Type: Report from Study
  Country: US (occurrence: US)
  Receive Date: 20250924
  Receipt Date: 20251120
  Transmission Date: 20260118
  Serious: Yes (Hospitalization, Other)
  Sender: ACADIA PHARMACEUTICALS
  Company Number: US-ACADIA PHARMACEUTICALS INC.-ACA-2025-PIM-010479

PATIENT
  Sex: Female

DRUGS (14)
  1. NUPLAZID [Suspect]
     Active Substance: PIMAVANSERIN TARTRATE
     Indication: Parkinson^s disease
     Dosage: 34 MILLIGRAM, QD
     Route: 048
  2. VYALEV [Concomitant]
     Active Substance: FOSCARBIDOPA\FOSLEVODOPA
     Dosage: 12-240/ML VIAL
  3. CYANOCOBALAMIN [Concomitant]
     Active Substance: CYANOCOBALAMIN
  4. RIVASTIGMINE [Concomitant]
     Active Substance: RIVASTIGMINE
     Dosage: 9.5MG/24HR PATCH TD24
  5. RIVASTIGMINE [Concomitant]
     Active Substance: RIVASTIGMINE
     Dosage: 13.3MG/24H PATCH TD24
  6. XANAX [Concomitant]
     Active Substance: ALPRAZOLAM
  7. TYLENOL [Concomitant]
     Active Substance: ACETAMINOPHEN
  8. ONDANSETRON HYDROCHLORIDE [Concomitant]
     Active Substance: ONDANSETRON HYDROCHLORIDE
  9. SINEMET [Concomitant]
     Active Substance: CARBIDOPA\LEVODOPA
  10. DULCOLAX (BISACODYL) [Concomitant]
     Active Substance: BISACODYL
  11. SYNTHROID [Concomitant]
     Active Substance: LEVOTHYROXINE SODIUM
  12. CARBIDOPA, LEVODOPA AND ENTACAPONE [Concomitant]
     Active Substance: CARBIDOPA\ENTACAPONE\LEVODOPA
  13. CARBIDOPA\LEVODOPA [Concomitant]
     Active Substance: CARBIDOPA\LEVODOPA
     Dosage: ER
  14. ENTACAPONE [Concomitant]
     Active Substance: ENTACAPONE
     Dosage: UNK

REACTIONS (8)
  - Urinary tract infection [Unknown]
  - Parkinson^s disease [Unknown]
  - Dehydration [Unknown]
  - Constipation [Unknown]
  - Injection site haemorrhage [Unknown]
  - Insomnia [Unknown]
  - Infusion site nodule [Unknown]
  - Anxiety [Unknown]
